FAERS Safety Report 8989933 (Version 1)
Quarter: 2012Q4

REPORT INFORMATION
  Report Type: 
  Country: IN (occurrence: IN)
  Receive Date: 20121228
  Receipt Date: 20121228
  Transmission Date: 20130627
  Serious: Yes (Other)
  Sender: FDA-Public Use
  Company Number: IN-PFIZER INC-2012327975

PATIENT
  Age: 42 Year
  Sex: Male

DRUGS (4)
  1. ADRIAMYCIN [Suspect]
     Indication: HODGKIN^S LYMPHOMA
     Dosage: six cycles
  2. BLEOMYCIN [Suspect]
     Indication: HODGKIN^S LYMPHOMA
     Dosage: 6 cycles
  3. DACARBAZINE [Suspect]
     Indication: HODGKIN^S LYMPHOMA
     Dosage: six cycles
  4. VINBLASTINE [Suspect]
     Indication: HODGKIN^S LYMPHOMA
     Dosage: six cycles

REACTIONS (2)
  - Second primary malignancy [Unknown]
  - Malignant fibrous histiocytoma [Unknown]
